FAERS Safety Report 12421866 (Version 1)
Quarter: 2016Q2

REPORT INFORMATION
  Report Type: Spontaneous
  Country: ES (occurrence: ES)
  Receive Date: 20160531
  Receipt Date: 20160531
  Transmission Date: 20160815
  Serious: Yes (Hospitalization)
  Sender: FDA-Public Use
  Company Number: ES-ABBVIE-16P-144-1639958-00

PATIENT
  Age: 79 Year
  Sex: Male

DRUGS (1)
  1. KREON [Suspect]
     Active Substance: PANCRELIPASE
     Indication: PANCREATITIS CHRONIC
     Dosage: DAILY DOSE: 80000 UNITS (30,000- 20,000- 30,000 UNITS)
     Route: 048
     Dates: start: 201601, end: 2016

REACTIONS (3)
  - Feeling abnormal [Recovered/Resolved]
  - Abdominal pain upper [Recovered/Resolved]
  - Anxiety [Recovered/Resolved]

NARRATIVE: CASE EVENT DATE: 201601
